FAERS Safety Report 13257352 (Version 1)
Quarter: 2017Q1

REPORT INFORMATION
  Report Type: Report from Study
  Country: JP (occurrence: JP)
  Receive Date: 20170221
  Receipt Date: 20170221
  Transmission Date: 20170428
  Serious: Yes (Hospitalization, Other)
  Sender: FDA-Public Use
  Company Number: JP-BRISTOL-MYERS SQUIBB COMPANY-19834571

PATIENT
  Age: 49 Year
  Sex: Male
  Weight: 53 kg

DRUGS (7)
  1. CALONAL [Concomitant]
     Active Substance: ACETAMINOPHEN
     Indication: PRODUCT USED FOR UNKNOWN INDICATION
     Dosage: 1800 MG, UNK
     Route: 048
     Dates: start: 20120423
  2. DASATINIB [Suspect]
     Active Substance: DASATINIB
     Indication: ACUTE LYMPHOCYTIC LEUKAEMIA
     Dosage: 30SEP10  01OCT10-14OCT10: 45 MG X 2/DAY,  15OCT10-01MAR11  02MAR11  ONGOING
     Route: 048
  3. TRAMAL [Concomitant]
     Active Substance: TRAMADOL
     Indication: PRODUCT USED FOR UNKNOWN INDICATION
     Dosage: CAPSULES
     Route: 048
     Dates: start: 20120427
  4. VALIXA [Concomitant]
     Active Substance: VALGANCICLOVIR
     Indication: PRODUCT USED FOR UNKNOWN INDICATION
     Dosage: ALTERNATE DAY
     Route: 048
     Dates: start: 20120327, end: 20120406
  5. ALPRAZOLAM. [Concomitant]
     Active Substance: ALPRAZOLAM
     Indication: PRODUCT USED FOR UNKNOWN INDICATION
     Dosage: .4 MG, UNK
     Route: 048
     Dates: start: 20120418, end: 20120420
  6. MYSLEE [Concomitant]
     Active Substance: ZOLPIDEM TARTRATE
     Indication: PRODUCT USED FOR UNKNOWN INDICATION
     Dosage: 28MAR12-17APR12  27APR12
     Route: 048
     Dates: start: 20120328
  7. BROTIZOLAM [Concomitant]
     Active Substance: BROTIZOLAM
     Indication: PRODUCT USED FOR UNKNOWN INDICATION
     Dosage: .125 MG, UNK
     Route: 048
     Dates: start: 20120307, end: 20120327

REACTIONS (10)
  - Pyrexia [Recovered/Resolved]
  - Gamma-glutamyltransferase increased [Recovering/Resolving]
  - Pleural effusion [Recovering/Resolving]
  - Alanine aminotransferase increased [Recovered/Resolved]
  - White blood cell count decreased [Recovered/Resolved]
  - Renal disorder [Recovered/Resolved]
  - Anaemia [Recovering/Resolving]
  - Aspartate aminotransferase increased [Recovered/Resolved]
  - Blood lactate dehydrogenase increased [Recovering/Resolving]
  - Neutrophil count decreased [Recovered/Resolved]

NARRATIVE: CASE EVENT DATE: 20090518
